FAERS Safety Report 5259685-2 (Version None)
Quarter: 2007Q1

REPORT INFORMATION
  Report Type: 
  Country: None (occurrence: None)
  Receive Date: 20070307
  Receipt Date: 20070307
  Transmission Date: 20070707
  Serious: Yes (Death, Hospitalization)
  Sender: FDA-Public Use
  Company Number: None

PATIENT
  Sex: Male
  Weight: 87 kg

DRUGS (2)
  1. PEMETREXED [Suspect]
     Indication: PROSTATE CANCER
     Dosage: 500 MG/M Q 21 DAYS IV
     Route: 042
     Dates: start: 20070123
  2. OXALIPLATIN [Suspect]
     Indication: ADENOCARCINOMA
     Dosage: 120 MG/KG Q 21 DAYS IV
     Route: 042
     Dates: start: 20070123

REACTIONS (7)
  - ANAEMIA [None]
  - CARDIO-RESPIRATORY ARREST [None]
  - CARDIOPULMONARY FAILURE [None]
  - HAEMATURIA [None]
  - LOSS OF CONSCIOUSNESS [None]
  - SUPRAPUBIC PAIN [None]
  - THROMBOSIS [None]
